FAERS Safety Report 15807567 (Version 1)
Quarter: 2019Q1

REPORT INFORMATION
  Report Type: Report from Study
  Country: US (occurrence: US)
  Receive Date: 20190110
  Receipt Date: 20190110
  Transmission Date: 20190417
  Serious: Yes (Other)
  Sender: FDA-Public Use
  Company Number: US-GILEAD-2019-0384057

PATIENT
  Age: 51 Year
  Sex: Female

DRUGS (15)
  1. ADCIRCA [Suspect]
     Active Substance: TADALAFIL
     Indication: PULMONARY ARTERIAL HYPERTENSION
     Dosage: 40 MG, QD
     Route: 065
     Dates: start: 20170317
  2. PRAVASTATIN. [Concomitant]
     Active Substance: PRAVASTATIN
  3. IRON [Concomitant]
     Active Substance: IRON
  4. MONTELUKAST [Concomitant]
     Active Substance: MONTELUKAST SODIUM
  5. AMBRISENTAN [Suspect]
     Active Substance: AMBRISENTAN
     Indication: PULMONARY ARTERIAL HYPERTENSION
     Dosage: 10 MG, QD
     Route: 065
     Dates: start: 20170303
  6. SODIUM BICARBONATE. [Concomitant]
     Active Substance: SODIUM BICARBONATE
  7. VITAMIN D [Concomitant]
     Active Substance: CHOLECALCIFEROL
  8. HYDROCHLOROTHIAZIDE. [Concomitant]
     Active Substance: HYDROCHLOROTHIAZIDE
  9. PANTOPRAZOLE [Concomitant]
     Active Substance: PANTOPRAZOLE
  10. ESCITALOPRAM [Concomitant]
     Active Substance: ESCITALOPRAM OXALATE
  11. PREDNISONE. [Concomitant]
     Active Substance: PREDNISONE
  12. ATOVAQUONE. [Concomitant]
     Active Substance: ATOVAQUONE
  13. MAG OXIDE [Concomitant]
     Active Substance: MAGNESIUM OXIDE
  14. PROCTOFOAM HC [Concomitant]
     Active Substance: HYDROCORTISONE ACETATE\PRAMOXINE HYDROCHLORIDE
  15. CLOBETASOL [Concomitant]
     Active Substance: CLOBETASOL

REACTIONS (2)
  - Dialysis [Not Recovered/Not Resolved]
  - Product dose omission [Unknown]

NARRATIVE: CASE EVENT DATE: 201812
